FAERS Safety Report 7084625-3 (Version None)
Quarter: 2010Q4

REPORT INFORMATION
  Report Type: 
  Country: None (occurrence: None)
  Receive Date: 20101104
  Receipt Date: 20101026
  Transmission Date: 20110411
  Serious: Yes (Hospitalization, Disabling, Other)
  Sender: FDA-Public Use
  Company Number: PHHY2010BR65587

PATIENT
  Age: 65 Year
  Sex: Female

DRUGS (1)
  1. FORASEQ [Suspect]
     Indication: ASTHMA
     Dosage: FORMOTEROL DAILY, BUDESONIDE PRN

REACTIONS (7)
  - DEVICE MALFUNCTION [None]
  - FALL [None]
  - HYPOKINESIA [None]
  - OSTEOARTHRITIS [None]
  - PHYSICAL DISABILITY [None]
  - PROSTHESIS IMPLANTATION [None]
  - WRONG TECHNIQUE IN DRUG USAGE PROCESS [None]
